FAERS Safety Report 6078663-7 (Version None)
Quarter: 2009Q1

REPORT INFORMATION
  Report Type: 
  Country: None (occurrence: None)
  Receive Date: 20090216
  Receipt Date: 20090211
  Transmission Date: 20090719
  Serious: Yes (Life-Threatening, Other)
  Sender: FDA-Public Use
  Company Number: PHBS2009FR00791

PATIENT
  Sex: Female
  Weight: 2 kg

DRUGS (7)
  1. OCTREOTIDE ACETATE [Suspect]
     Route: 064
  2. WARFARIN SODIUM [Suspect]
     Route: 064
  3. ENOXAPARIN SODIUM [Suspect]
     Route: 064
  4. ERYTHROMYCIN [Suspect]
     Route: 064
  5. AMLODIPINE [Suspect]
     Route: 064
  6. NIFEDIPINE [Suspect]
     Route: 064
  7. BETAMETHASONE [Suspect]
     Route: 064

REACTIONS (6)
  - DRUG EXPOSURE DURING PREGNANCY [None]
  - FOETAL HEART RATE DECREASED [None]
  - MECHANICAL VENTILATION [None]
  - NEONATAL RESPIRATORY DISTRESS SYNDROME [None]
  - NORMAL NEWBORN [None]
  - PREMATURE BABY [None]
